FAERS Safety Report 8537604 (Version 3)
Quarter: 2013Q1

REPORT INFORMATION
  Report Type: Spontaneous
  Country: JP (occurrence: None)
  Receive Date: 20120419
  Receipt Date: 20130213
  Transmission Date: 20140127
  Serious: Yes (Life-Threatening, Hospitalization, Other)
  Sender: FDA-Public Use
  Company Number: ADR-2012-00719

PATIENT
  Age: 29 Year
  Sex: Male

DRUGS (7)
  1. BACLOFEN [Suspect]
     Dosage: SEE IMAGE
  2. HORIZON [Concomitant]
  3. FUTHAN [Concomitant]
  4. PLATELETS [Concomitant]
  5. LAMICTAL [Concomitant]
  6. LIORESAL [Concomitant]
  7. MYSTAN [Concomitant]

REACTIONS (25)
  - Therapy change [None]
  - Pyrexia [None]
  - Drug withdrawal syndrome [None]
  - Muscle spasms [None]
  - Septic shock [None]
  - Disseminated intravascular coagulation [None]
  - Vomiting [None]
  - Peripheral coldness [None]
  - Serratia sepsis [None]
  - International normalised ratio increased [None]
  - Activated partial thromboplastin time prolonged [None]
  - Aspartate aminotransferase increased [None]
  - Alanine aminotransferase increased [None]
  - Blood lactate dehydrogenase increased [None]
  - Blood urea increased [None]
  - Blood calcium increased [None]
  - Haemoglobin decreased [None]
  - Haematocrit decreased [None]
  - Protein total decreased [None]
  - Blood albumin decreased [None]
  - Blood sodium decreased [None]
  - Blood chloride decreased [None]
  - Platelet distribution width increased [None]
  - Mean platelet volume increased [None]
  - Complex partial seizures [None]
